FAERS Safety Report 20626837 (Version 1)
Quarter: 2022Q1

REPORT INFORMATION
  Report Type: Spontaneous
  Country: US (occurrence: None)
  Receive Date: 20220322
  Receipt Date: 20220322
  Transmission Date: 20220423
  Serious: Yes (Hospitalization)
  Sender: FDA-Public Use
  Company Number: None

PATIENT
  Sex: Female

DRUGS (1)
  1. COPAXONE [Suspect]
     Active Substance: GLATIRAMER ACETATE
     Indication: Multiple sclerosis
     Dosage: 40MG THREE TIMES A WEEK SUBCUTANEOUS?
     Route: 058
     Dates: start: 20151015

REACTIONS (3)
  - Ulcer [None]
  - Diaphragmatic hernia [None]
  - Oesophageal spasm [None]

NARRATIVE: CASE EVENT DATE: 20211101
